FAERS Safety Report 16443100 (Version 1)
Quarter: 2019Q2

REPORT INFORMATION
  Report Type: Other
  Country: FR (occurrence: FR)
  Receive Date: 20190617
  Receipt Date: 20190617
  Transmission Date: 20190711
  Serious: Yes (Other)
  Sender: FDA-Public Use
  Company Number: FR-CELLTRION INC.-2019FR021902

PATIENT

DRUGS (10)
  1. CLAIRYG [Suspect]
     Active Substance: HUMAN IMMUNOGLOBULIN G
     Indication: SQUAMOUS CELL CARCINOMA
     Dosage: 20 MG, EVERY MONTH
     Route: 042
     Dates: start: 2018
  2. ERBITUX [Suspect]
     Active Substance: CETUXIMAB
     Indication: SQUAMOUS CELL CARCINOMA
     Dosage: 445 MG, EVERY WEEK
     Route: 042
     Dates: start: 20190131
  3. METHYLPREDNISOLONE. [Suspect]
     Active Substance: METHYLPREDNISOLONE
     Indication: SQUAMOUS CELL CARCINOMA
     Dosage: 40 MG, EVERY WEEK
     Route: 042
     Dates: start: 20190131
  4. TOLEXINE [DOXYCYCLINE HYDROCHLORIDE] [Suspect]
     Active Substance: DOXYCYCLINE HYDROCHLORIDE
     Indication: ACNE
     Dosage: 1 DF, EVERY DAY
     Route: 048
     Dates: start: 201901
  5. FLUOROURACILE [Suspect]
     Active Substance: FLUOROURACIL
     Indication: SQUAMOUS CELL CARCINOMA
     Dosage: 7200 MG
     Route: 042
     Dates: start: 20190208, end: 20190324
  6. LAROXYL [Suspect]
     Active Substance: AMITRIPTYLINE HYDROCHLORIDE
     Indication: PRODUCT USED FOR UNKNOWN INDICATION
     Dosage: 15 MG
     Route: 048
  7. OXYCONTIN [Suspect]
     Active Substance: OXYCODONE HYDROCHLORIDE
     Indication: PAIN
     Dosage: 140 MG, EVERY DAY
     Route: 048
  8. CISPLATINE [Suspect]
     Active Substance: CISPLATIN
     Indication: SQUAMOUS CELL CARCINOMA
     Dosage: 413 MG
     Route: 042
     Dates: start: 20190208, end: 20190320
  9. IMBRUVICA [Suspect]
     Active Substance: IBRUTINIB
     Indication: WALDENSTROM^S MACROGLOBULINAEMIA
     Dosage: 1 DF, EVERY 21 DAYS
     Route: 048
     Dates: start: 20170104
  10. RITUXIMAB (UNKNOWN) [Suspect]
     Active Substance: RITUXIMAB
     Indication: WALDENSTROM^S MACROGLOBULINAEMIA
     Dosage: 700 MG EVERY 21 DAYS
     Route: 042
     Dates: start: 20180924, end: 20190115

REACTIONS (2)
  - Product use in unapproved indication [Unknown]
  - Deafness unilateral [Not Recovered/Not Resolved]

NARRATIVE: CASE EVENT DATE: 20190427
